FAERS Safety Report 17265237 (Version 1)
Quarter: 2020Q1

REPORT INFORMATION
  Report Type: Report from Study
  Country: CO (occurrence: CO)
  Receive Date: 20200114
  Receipt Date: 20200114
  Transmission Date: 20200409
  Serious: Yes (Hospitalization)
  Sender: FDA-Public Use
  Company Number: CO-ROCHE-2514150

PATIENT
  Sex: Male

DRUGS (2)
  1. VISMODEGIB. [Suspect]
     Active Substance: VISMODEGIB
     Route: 048
     Dates: start: 20141202, end: 20160214
  2. VISMODEGIB. [Suspect]
     Active Substance: VISMODEGIB
     Indication: BASAL CELL CARCINOMA
     Route: 048
     Dates: start: 20141202

REACTIONS (5)
  - Decreased appetite [Unknown]
  - Dysgeusia [Unknown]
  - Pain in extremity [Unknown]
  - Thrombocytopenia [Recovered/Resolved]
  - Dehydration [Recovered/Resolved]
